FAERS Safety Report 8534324-3 (Version None)
Quarter: 2012Q3

REPORT INFORMATION
  Report Type: 
  Country: None (occurrence: None)
  Receive Date: 20120724
  Receipt Date: 20120712
  Transmission Date: 20120928
  Serious: Yes (Other)
  Sender: FDA-Public Use
  Company Number: IT-CELGENEUS-083-21880-12031803

PATIENT
  Sex: Male

DRUGS (7)
  1. RAMIPRIL [Concomitant]
     Dosage: 1 TABLET
     Route: 048
  2. CARDURA [Concomitant]
     Dosage: 1 TABLET
     Route: 048
  3. PRAVASELECT [Concomitant]
     Dosage: 1 TABLET
     Route: 065
  4. REVLIMID [Suspect]
     Indication: MULTIPLE MYELOMA
     Dosage: 10 MILLIGRAM
     Route: 048
     Dates: start: 20100319, end: 20120207
  5. LIMPIDEX [Concomitant]
     Dosage: 1 TABLET
     Route: 048
  6. METFORMIN HYDROCHLORIDE [Concomitant]
     Route: 065
  7. ENOXAPARIN SODIUM [Concomitant]
     Dosage: 1 VIAL
     Route: 058

REACTIONS (1)
  - RENAL CELL CARCINOMA [None]
